FAERS Safety Report 8521827-0 (Version None)
Quarter: 2012Q3

REPORT INFORMATION
  Report Type: 
  Country: None (occurrence: None)
  Receive Date: 20120719
  Receipt Date: 20120416
  Transmission Date: 20120928
  Serious: No
  Sender: FDA-Public Use
  Company Number: US-BRISTOL-MYERS SQUIBB COMPANY-16525966

PATIENT
  Age: 6 Decade
  Sex: Female

DRUGS (2)
  1. YERVOY [Suspect]
     Dosage: NO OF INFUSIONS 3 3RD INFUSION 27MAR2012
  2. VEMURAFENIB [Suspect]

REACTIONS (4)
  - RASH PRURITIC [None]
  - PYREXIA [None]
  - BLOOD POTASSIUM DECREASED [None]
  - PHOTOSENSITIVITY REACTION [None]
